FAERS Safety Report 9542806 (Version 1)
Quarter: 2013Q2

REPORT INFORMATION
  Report Type: Spontaneous
  Country: US (occurrence: None)
  Receive Date: 20130524
  Receipt Date: 20130524
  Transmission Date: 20140414
  Serious: No
  Sender: FDA-Public Use
  Company Number: PHEH2013US000719

PATIENT
  Age: 54 Year
  Sex: Female
  Weight: 56.2 kg

DRUGS (5)
  1. GILENYA (FINGOLIMOD) CAPSULE, 0.5MG [Suspect]
     Indication: MULTIPLE SCLEROSIS
     Route: 048
     Dates: start: 20130101
  2. IMITREX [Concomitant]
  3. ACTIVELLA [Concomitant]
  4. VITAMIN D [Concomitant]
  5. ZOLPIDEM [Concomitant]

REACTIONS (3)
  - Fatigue [None]
  - Headache [None]
  - Paraesthesia [None]
